FAERS Safety Report 6160320-X (Version None)
Quarter: 2009Q2

REPORT INFORMATION
  Report Type: 
  Country: None (occurrence: None)
  Receive Date: 20090415
  Receipt Date: 20090415
  Transmission Date: 20091009
  Serious: Yes (Other)
  Sender: FDA-Public Use
  Company Number: None

PATIENT
  Age: 86 Year
  Sex: Male
  Weight: 81.6475 kg

DRUGS (1)
  1. LEVAQUIN [Suspect]
     Indication: PNEUMONIA
     Dosage: ONE CAP QD PO
     Route: 048
     Dates: start: 20090401, end: 20090405

REACTIONS (3)
  - MYALGIA [None]
  - TENDON RUPTURE [None]
  - TENDONITIS [None]
